FAERS Safety Report 17431598 (Version 2)
Quarter: 2020Q4

REPORT INFORMATION
  Report Type: Report from Study
  Country: DE (occurrence: DE)
  Receive Date: 20200218
  Receipt Date: 20201009
  Transmission Date: 20210113
  Serious: No
  Sender: FDA-Public Use
  Company Number: DE-SHIRE-DE201944872

PATIENT

DRUGS (8)
  1. TEDUGLUTIDE [Suspect]
     Active Substance: TEDUGLUTIDE
     Dosage: 0.05 MILLIGRAM/KILOGRAM, 1X/DAY:QD
     Route: 058
     Dates: start: 20201004
  2. TEDUGLUTIDE [Suspect]
     Active Substance: TEDUGLUTIDE
     Dosage: 0.05 MILLIGRAM/KILOGRAM, 1X/DAY:QD
     Route: 058
     Dates: start: 20201004
  3. TEDUGLUTIDE [Suspect]
     Active Substance: TEDUGLUTIDE
     Indication: SHORT-BOWEL SYNDROME
     Dosage: 0.38 MILLILITER, 1X/DAY:QD
     Route: 058
     Dates: start: 20160825
  4. TEDUGLUTIDE [Suspect]
     Active Substance: TEDUGLUTIDE
     Indication: SHORT-BOWEL SYNDROME
     Dosage: 0.38 MILLILITER, 1X/DAY:QD
     Route: 058
     Dates: start: 20160825
  5. TEDUGLUTIDE [Suspect]
     Active Substance: TEDUGLUTIDE
     Indication: SHORT-BOWEL SYNDROME
     Dosage: 0.38 MILLILITER, 1X/DAY:QD
     Route: 058
     Dates: start: 20160825
  6. TEDUGLUTIDE [Suspect]
     Active Substance: TEDUGLUTIDE
     Dosage: 0.05 MILLIGRAM/KILOGRAM, 1X/DAY:QD
     Route: 058
     Dates: start: 20201004
  7. TEDUGLUTIDE [Suspect]
     Active Substance: TEDUGLUTIDE
     Dosage: 0.05 MILLIGRAM/KILOGRAM, 1X/DAY:QD
     Route: 058
     Dates: start: 20201004
  8. TEDUGLUTIDE [Suspect]
     Active Substance: TEDUGLUTIDE
     Indication: SHORT-BOWEL SYNDROME
     Dosage: 0.38 MILLILITER, 1X/DAY:QD
     Route: 058
     Dates: start: 20160825

REACTIONS (2)
  - Intestinal polyp [Not Recovered/Not Resolved]
  - Gastritis [Unknown]

NARRATIVE: CASE EVENT DATE: 201909
